FAERS Safety Report 5643752-5 (Version None)
Quarter: 2008Q1

REPORT INFORMATION
  Report Type: 
  Country: None (occurrence: None)
  Receive Date: 20080131
  Receipt Date: 20071203
  Transmission Date: 20080703
  Serious: No
  Sender: FDA-Public Use
  Company Number: 163-21880-07101046

PATIENT
  Age: 67 Year
  Sex: Female

DRUGS (11)
  1. REVLIMID [Suspect]
     Indication: MULTIPLE MYELOMA
     Dosage: 15 MG, QD X21 DAYS, ORAL ; QD X 21 DAYS, ORAL
     Route: 048
     Dates: start: 20070927, end: 20071018
  2. REVLIMID [Suspect]
     Indication: MULTIPLE MYELOMA
     Dosage: 15 MG, QD X21 DAYS, ORAL ; QD X 21 DAYS, ORAL
     Route: 048
     Dates: start: 20071025
  3. DEXAMETHASONE TAB [Concomitant]
  4. FELODIPINE [Concomitant]
  5. PREDNISONE TAB [Concomitant]
  6. LORAZEPAM [Concomitant]
  7. VELCADE [Concomitant]
  8. AREDIA [Concomitant]
  9. DARBEPOETIN (DARBEPOETIN ALFA) [Concomitant]
  10. COUMADIN [Concomitant]
  11. ASPIRIN [Concomitant]

REACTIONS (5)
  - HAEMOGLOBIN DECREASED [None]
  - HYPERTENSION [None]
  - NEUTROPHIL COUNT DECREASED [None]
  - RENAL FAILURE [None]
  - WHITE BLOOD CELL COUNT DECREASED [None]
